FAERS Safety Report 6745691-5 (Version None)
Quarter: 2010Q2

REPORT INFORMATION
  Report Type: 
  Country: None (occurrence: None)
  Receive Date: 20100528
  Receipt Date: 20100518
  Transmission Date: 20101027
  Serious: Yes (Hospitalization)
  Sender: FDA-Public Use
  Company Number: US-ABBOTT-10P-163-0645803-00

PATIENT
  Sex: Female

DRUGS (2)
  1. BIAXIN [Suspect]
     Indication: DRUG USE FOR UNKNOWN INDICATION
  2. SIMVASTATIN [Concomitant]
     Indication: DRUG USE FOR UNKNOWN INDICATION

REACTIONS (3)
  - MUSCLE ENZYME INCREASED [None]
  - NASOPHARYNGITIS [None]
  - RHABDOMYOLYSIS [None]
